FAERS Safety Report 9052478 (Version 4)
Quarter: 2013Q1

REPORT INFORMATION
  Report Type: Spontaneous
  Country: FR (occurrence: FR)
  Receive Date: 20130207
  Receipt Date: 20130315
  Transmission Date: 20140127
  Serious: Yes (Hospitalization, Other)
  Sender: FDA-Public Use
  Company Number: FR-JNJFOC-20130201817

PATIENT
  Age: 83 None
  Sex: Female

DRUGS (6)
  1. XARELTO [Suspect]
     Indication: CEREBROVASCULAR ACCIDENT PROPHYLAXIS
     Route: 048
     Dates: start: 20121212, end: 20130123
  2. XARELTO [Suspect]
     Indication: ATRIAL FIBRILLATION
     Route: 048
     Dates: start: 20121212, end: 20130123
  3. CORDARONE [Concomitant]
     Route: 065
     Dates: start: 20121212, end: 20130123
  4. COVERAM [Concomitant]
     Route: 065
     Dates: start: 20121208, end: 20130123
  5. AMLOR [Concomitant]
     Route: 065
     Dates: start: 201301
  6. LASILIX [Concomitant]
     Route: 065
     Dates: start: 20121208, end: 20130123

REACTIONS (4)
  - Hepatocellular injury [Recovering/Resolving]
  - Jaundice [Recovering/Resolving]
  - Cholestasis [Recovering/Resolving]
  - Drug-induced liver injury [Recovering/Resolving]
